FAERS Safety Report 10645870 (Version 1)
Quarter: 2014Q4

REPORT INFORMATION
  Report Type: Spontaneous
  Country: KR (occurrence: None)
  Receive Date: 20141209
  Receipt Date: 20141209
  Transmission Date: 20150529
  Serious: Yes (Other)
  Sender: FDA-Public Use
  Company Number: 2656592

PATIENT
  Age: 36 Year
  Sex: Female

DRUGS (3)
  1. MITOMYCIN C [Suspect]
     Active Substance: MITOMYCIN
     Indication: CERVIX CARCINOMA STAGE I
     Dates: start: 201208
  2. (CISPLATIN) [Suspect]
     Active Substance: CISPLATIN
     Indication: CERVIX CARCINOMA STAGE I
     Dates: start: 201208
  3. (VINCRISTINE SULFATE) [Suspect]
     Active Substance: VINCRISTINE SULFATE
     Indication: CERVIX CARCINOMA STAGE I
     Dates: start: 201208

REACTIONS (4)
  - Haemodialysis [None]
  - Haemolytic uraemic syndrome [None]
  - Thrombocytopenia [None]
  - Acute kidney injury [None]

NARRATIVE: CASE EVENT DATE: 201212
